FAERS Safety Report 8534647-8 (Version None)
Quarter: 2012Q3

REPORT INFORMATION
  Report Type: 
  Country: None (occurrence: None)
  Receive Date: 20120724
  Receipt Date: 20120717
  Transmission Date: 20120928
  Serious: Yes (Hospitalization, Other)
  Sender: FDA-Public Use
  Company Number: US-B.I. PHARMACEUTICALS,INC./RIDGEFIELD-2011-BP-20507BP

PATIENT
  Sex: Female
  Weight: 104.78 kg

DRUGS (8)
  1. SIMCOR [Concomitant]
     Indication: LIPIDS
     Dates: start: 20110607
  2. NIASPAN [Concomitant]
     Indication: LIPIDS
     Dates: start: 20070101
  3. LEXAPRO [Concomitant]
     Indication: DEPRESSION
     Dosage: 10 MG
     Dates: start: 20060306
  4. TRADJENTA [Suspect]
     Indication: TYPE 2 DIABETES MELLITUS
     Dosage: 5 MG
     Dates: start: 20110719, end: 20110817
  5. METFORMIN HYDROCHLORIDE [Concomitant]
     Indication: DIABETES MELLITUS
     Dates: start: 20060901
  6. LOVAZA [Concomitant]
     Indication: LIPIDS
     Dosage: 1000 G
  7. LOESTRIN 1.5/30 [Concomitant]
     Indication: CONTRACEPTION
  8. SIMVASTATIN [Concomitant]
     Indication: LIPIDS
     Dates: start: 20070101

REACTIONS (2)
  - PANCREATITIS [None]
  - ABDOMINAL PAIN [None]
